FAERS Safety Report 5045438-7 (Version None)
Quarter: 2006Q3

REPORT INFORMATION
  Report Type: 
  Country: None (occurrence: None)
  Receive Date: 20060707
  Receipt Date: 20060515
  Transmission Date: 20061208
  Serious: Yes (Other)
  Sender: FDA-Public Use
  Company Number: AU-NOVOPROD-253397

PATIENT
  Age: 14 Year
  Sex: Male
  Weight: 58 kg

DRUGS (1)
  1. NORDITROPIN [Suspect]
     Indication: BODY HEIGHT BELOW NORMAL
     Dosage: 1.8 MG, QD
     Route: 058
     Dates: start: 20000127

REACTIONS (2)
  - ARTHRALGIA [None]
  - OSTEONECROSIS [None]
